FAERS Safety Report 5471841-7 (Version None)
Quarter: 2007Q3

REPORT INFORMATION
  Report Type: 
  Country: None (occurrence: None)
  Receive Date: 20070928
  Receipt Date: 20070621
  Transmission Date: 20080115
  Serious: No
  Sender: FDA-Public Use
  Company Number: US-BRISTOL-MYERS SQUIBB COMPANY-13822580

PATIENT
  Age: 70 Year
  Sex: Male
  Weight: 109 kg

DRUGS (8)
  1. DEFINITY [Suspect]
     Route: 042
     Dates: start: 20070614
  2. ALBUTEROL [Concomitant]
  3. CIPRO [Concomitant]
  4. ALLEGRA [Concomitant]
  5. ADVAIR DISKUS 100/50 [Concomitant]
  6. FUROSEMIDE [Concomitant]
  7. XALATAN [Concomitant]
  8. SYNTHROID [Concomitant]

REACTIONS (4)
  - DIZZINESS [None]
  - DYSPNOEA [None]
  - FLUSHING [None]
  - HYPERHIDROSIS [None]
